FAERS Safety Report 19586263 (Version 1)
Quarter: 2021Q3

REPORT INFORMATION
  Report Type: Spontaneous
  Country: US (occurrence: US)
  Receive Date: 20210720
  Receipt Date: 20210720
  Transmission Date: 20211014
  Serious: No
  Sender: FDA-Public Use
  Company Number: US-LUPIN PHARMACEUTICALS INC.-2021-11902

PATIENT
  Age: 18 Year
  Sex: Female

DRUGS (9)
  1. METOPROLOL. [Concomitant]
     Active Substance: METOPROLOL
     Indication: HYPERTROPHIC CARDIOMYOPATHY
     Dosage: UNK
     Route: 065
  2. IMMUNOGLOBULIN [Concomitant]
     Indication: MYOCARDITIS
     Dosage: UNK
     Route: 042
  3. METHYLPREDNISOLONE. [Concomitant]
     Active Substance: METHYLPREDNISOLONE
     Indication: MYOCARDITIS
     Dosage: UNK
     Route: 042
  4. TOCILIZUMAB. [Suspect]
     Active Substance: TOCILIZUMAB
     Indication: COVID-19
     Dosage: UNK
     Route: 065
  5. HYDROXYCHLOROQUINE [Suspect]
     Active Substance: HYDROXYCHLOROQUINE
     Indication: COVID-19
     Dosage: UNK
     Route: 005
  6. CONVALESCENT PLASMA COVID?19 [Suspect]
     Active Substance: COVID-19 CONVALESCENT PLASMA
     Indication: COVID-19
     Dosage: UNK
     Route: 065
  7. AMIODARONE [Concomitant]
     Active Substance: AMIODARONE
     Indication: VENTRICULAR TACHYCARDIA
     Dosage: UNK
     Route: 065
  8. AZITHROMYCIN ANHYDROUS. [Suspect]
     Active Substance: AZITHROMYCIN ANHYDROUS
     Indication: COVID-19
     Dosage: UNK
     Route: 065
  9. LIDOCAINE. [Concomitant]
     Active Substance: LIDOCAINE
     Indication: VENTRICULAR TACHYCARDIA
     Dosage: UNK
     Route: 065

REACTIONS (1)
  - Off label use [Unknown]
